FAERS Safety Report 12358613 (Version 1)
Quarter: 2016Q2

REPORT INFORMATION
  Report Type: Spontaneous
  Country: US (occurrence: US)
  Receive Date: 20160512
  Receipt Date: 20160512
  Transmission Date: 20160815
  Serious: Yes (Hospitalization, Other)
  Sender: FDA-Public Use
  Company Number: US-EMD SERONO-232410K08USA

PATIENT
  Age: 55 Year
  Sex: Female
  Weight: 76 kg

DRUGS (2)
  1. REBIF [Suspect]
     Active Substance: INTERFERON BETA-1A
     Indication: MULTIPLE SCLEROSIS
     Route: 058
     Dates: start: 20061116
  2. REBIF [Suspect]
     Active Substance: INTERFERON BETA-1A
     Route: 058

REACTIONS (5)
  - Pseudomonas infection [Recovered/Resolved]
  - Urinary tract infection [Unknown]
  - Urinary tract infection staphylococcal [Unknown]
  - Urosepsis [Recovered/Resolved]
  - Device related thrombosis [Unknown]

NARRATIVE: CASE EVENT DATE: 200810
